FAERS Safety Report 5437829-7 (Version None)
Quarter: 2007Q3

REPORT INFORMATION
  Report Type: 
  Country: None (occurrence: None)
  Receive Date: 20070831
  Receipt Date: 20070823
  Transmission Date: 20080115
  Serious: Yes (Other)
  Sender: FDA-Public Use
  Company Number: FR-ASTRAZENECA-2007CG01172

PATIENT
  Age: 28834 Day
  Sex: Female
  Weight: 80 kg

DRUGS (5)
  1. SEROQUEL [Suspect]
     Indication: PSYCHOTIC DISORDER
     Route: 048
  2. COAPROVEL [Concomitant]
     Indication: HYPERTENSION
  3. LEXOMIL [Concomitant]
     Indication: ANXIETY
  4. IDEOS [Concomitant]
  5. STILNOX [Concomitant]
     Indication: INSOMNIA

REACTIONS (2)
  - AGRANULOCYTOSIS [None]
  - ANAEMIA MACROCYTIC [None]
